FAERS Safety Report 5063059-7 (Version None)
Quarter: 2006Q3

REPORT INFORMATION
  Report Type: 
  Country: None (occurrence: None)
  Receive Date: 20060727
  Receipt Date: 20060328
  Transmission Date: 20061208
  Serious: Yes (Death, Hospitalization, Other)
  Sender: FDA-Public Use
  Company Number: PHEH2006US04081

PATIENT
  Age: 72 Year
  Sex: Female

DRUGS (11)
  1. EXJADE [Suspect]
     Indication: HAEMOCHROMATOSIS
     Dosage: 875 MG, QD
     Dates: start: 20060217, end: 20060314
  2. PREDNISONE TAB [Concomitant]
     Indication: RHEUMATOID ARTHRITIS
     Dosage: 10 MG, QD
  3. EVISTA [Concomitant]
     Indication: OSTEOPOROSIS
     Dosage: 60 MG, QD
  4. REVLIMID [Concomitant]
     Dosage: 5 MG, QD
     Dates: start: 20060101, end: 20060301
  5. PRILOSEC [Concomitant]
     Indication: GASTROOESOPHAGEAL REFLUX DISEASE
     Dosage: 20 MG, QD
  6. ACTOS /USA/ [Concomitant]
     Indication: DIABETES MELLITUS
     Dosage: 30 MG, QD
  7. HYOSCYAMINE [Concomitant]
     Indication: IRRITABLE BOWEL SYNDROME
     Dosage: 0.125 MG, TID/PRN
  8. ERYTHROMYCIN [Concomitant]
     Dosage: UNK, QHS
  9. ARTIFICIAL TEARS [Concomitant]
     Dosage: UNK, QID
  10. LORTAB [Concomitant]
     Indication: PAIN
     Dosage: 7.5MG HYDROCODONE/500MG PARACETAMOL/PRN
  11. CALCIUM WITH VITAMIN D [Concomitant]
     Indication: OSTEOPOROSIS
     Dosage: 600 MG, TID

REACTIONS (19)
  - ABASIA [None]
  - ACTIVITIES OF DAILY LIVING IMPAIRED [None]
  - ECCHYMOSIS [None]
  - EPISTAXIS [None]
  - HAEMATURIA [None]
  - HAEMOGLOBIN DECREASED [None]
  - HAEMORRHAGE [None]
  - INTERVERTEBRAL DISC PROTRUSION [None]
  - MOUTH HAEMORRHAGE [None]
  - MUSCLE SPASMS [None]
  - MYELODYSPLASTIC SYNDROME [None]
  - PAIN [None]
  - PANCYTOPENIA [None]
  - PETECHIAE [None]
  - RECTAL HAEMORRHAGE [None]
  - SCIATICA [None]
  - THROMBOCYTOPENIA [None]
  - TRANSFUSION [None]
  - WHITE BLOOD CELL DISORDER [None]
